FAERS Safety Report 11848452 (Version 1)
Quarter: 2015Q4

REPORT INFORMATION
  Report Type: Spontaneous
  Country: US (occurrence: US)
  Receive Date: 20151218
  Receipt Date: 20151218
  Transmission Date: 20160305
  Serious: Yes (Other)
  Sender: FDA-Public Use
  Company Number: US-HOSPIRA-3105147

PATIENT
  Age: 74 Year
  Sex: Male

DRUGS (1)
  1. LEVOFLOXACIN. [Suspect]
     Active Substance: LEVOFLOXACIN
     Indication: CHOLECYSTITIS
     Route: 042
     Dates: start: 20150910, end: 20150913

REACTIONS (9)
  - Loss of consciousness [Recovering/Resolving]
  - Muscle spasms [Recovering/Resolving]
  - Skin exfoliation [Not Recovered/Not Resolved]
  - Urinary retention [Recovering/Resolving]
  - Cardiac disorder [Recovering/Resolving]
  - Pruritus [Recovering/Resolving]
  - Diverticulitis [Recovering/Resolving]
  - Colitis [Recovering/Resolving]
  - Pain [Recovering/Resolving]

NARRATIVE: CASE EVENT DATE: 201509
